FAERS Safety Report 5759397-2 (Version None)
Quarter: 2008Q2

REPORT INFORMATION
  Report Type: 
  Country: None (occurrence: None)
  Receive Date: 20080604
  Receipt Date: 20080604
  Transmission Date: 20081010
  Serious: Yes (Death)
  Sender: FDA-Public Use
  Company Number: None

PATIENT
  Age: 82 Year
  Sex: Male
  Weight: 71.2147 kg

DRUGS (1)
  1. DIGITEK [Suspect]
     Dosage: .025MG
     Dates: start: 20080204, end: 20080309

REACTIONS (1)
  - UNEVALUABLE EVENT [None]
